FAERS Safety Report 17423570 (Version 2)
Quarter: 2020Q1

REPORT INFORMATION
  Report Type: Spontaneous
  Country: US (occurrence: US)
  Receive Date: 20200217
  Receipt Date: 20200303
  Transmission Date: 20200409
  Serious: Yes (Disabling, Other)
  Sender: FDA-Public Use
  Company Number: US-AMGEN-USASP2020024797

PATIENT
  Age: 82 Year
  Sex: Female
  Weight: 83.9 kg

DRUGS (1)
  1. EVENITY [Suspect]
     Active Substance: ROMOSOZUMAB-AQQG
     Indication: OSTEOPOROSIS POSTMENOPAUSAL
     Dosage: 210 MILLIGRAM, QMO
     Route: 065
     Dates: start: 20190614, end: 20200108

REACTIONS (3)
  - Pelvic fracture [Unknown]
  - Drug ineffective [Unknown]
  - Scoliosis [Unknown]

NARRATIVE: CASE EVENT DATE: 2019
